FAERS Safety Report 13619330 (Version 1)
Quarter: 2017Q2

REPORT INFORMATION
  Report Type: Spontaneous
  Country: US (occurrence: US)
  Receive Date: 20170606
  Receipt Date: 20170606
  Transmission Date: 20170830
  Serious: No
  Sender: FDA-Public Use
  Company Number: None

PATIENT
  Age: 54 Year
  Sex: Female
  Weight: 72 kg

DRUGS (4)
  1. AMITRIPTYLINE [Concomitant]
     Active Substance: AMITRIPTYLINE
  2. SIMVASTATIN. [Concomitant]
     Active Substance: SIMVASTATIN
  3. CETIRIZINE HYDROCHLORIDE. [Concomitant]
     Active Substance: CETIRIZINE HYDROCHLORIDE
  4. SENSODYNE REPAIR AND PROTECT WHITENING [Suspect]
     Active Substance: STANNOUS FLUORIDE
     Indication: DENTAL CARIES
     Dosage: OTHER ROUTE:BRUSHED TEETH?
     Dates: start: 20170605, end: 20170606

REACTIONS (1)
  - Product taste abnormal [None]

NARRATIVE: CASE EVENT DATE: 20170605
